FAERS Safety Report 19110219 (Version 1)
Quarter: 2021Q2

REPORT INFORMATION
  Report Type: Spontaneous
  Country: TR (occurrence: TR)
  Receive Date: 20210408
  Receipt Date: 20210408
  Transmission Date: 20210717
  Serious: Yes (Death, Other)
  Sender: FDA-Public Use
  Company Number: TR-MEITHEAL PHARMACEUTICALS-2021MHL00034

PATIENT
  Age: 40 Year
  Sex: Male

DRUGS (3)
  1. CISPLATIN. [Concomitant]
     Active Substance: CISPLATIN
     Dosage: 3 CYCLES
     Route: 065
  2. BLEOMYCIN [Suspect]
     Active Substance: BLEOMYCIN SULFATE
     Indication: TESTIS CANCER
     Dosage: 3 CYCLES
     Route: 065
  3. ETOPOSIDE. [Concomitant]
     Active Substance: ETOPOSIDE
     Dosage: 3 CYCLES
     Route: 065

REACTIONS (5)
  - Pulmonary toxicity [Fatal]
  - Pulmonary interstitial emphysema syndrome [Fatal]
  - Pneumomediastinum [Fatal]
  - Subcutaneous emphysema [Fatal]
  - Pneumothorax [Fatal]
